FAERS Safety Report 4408803-4 (Version None)
Quarter: 2004Q3

REPORT INFORMATION
  Report Type: 
  Country: None (occurrence: None)
  Receive Date: 20040727
  Receipt Date: 20040622
  Transmission Date: 20050211
  Serious: Yes (Hospitalization)
  Sender: FDA-Public Use
  Company Number: US-MERCK-0406USA02167

PATIENT
  Age: 77 Year
  Sex: Male

DRUGS (7)
  1. AGGRENOX [Concomitant]
     Route: 065
  2. ATENOLOL [Concomitant]
     Route: 065
  3. LASIX [Concomitant]
     Route: 065
  4. ZESTRIL [Concomitant]
     Route: 065
  5. ZOCOR [Suspect]
     Indication: ATRIAL FIBRILLATION
     Route: 048
     Dates: end: 20030515
  6. COUMADIN [Concomitant]
     Indication: ATRIAL FIBRILLATION
     Route: 065
  7. COUMADIN [Concomitant]
     Route: 065

REACTIONS (13)
  - ANOREXIA [None]
  - ATRIAL FIBRILLATION [None]
  - BLOOD CREATININE INCREASED [None]
  - BLOOD POTASSIUM DECREASED [None]
  - BLOOD UREA INCREASED [None]
  - CRYING [None]
  - DEHYDRATION [None]
  - DEPRESSION [None]
  - FALL [None]
  - INCOHERENT [None]
  - MARKEDLY REDUCED DIETARY INTAKE [None]
  - MUSCULAR WEAKNESS [None]
  - RHABDOMYOLYSIS [None]
